FAERS Safety Report 24621153 (Version 1)
Quarter: 2024Q4

REPORT INFORMATION
  Report Type: Spontaneous
  Country: US (occurrence: None)
  Receive Date: 20241114
  Receipt Date: 20241114
  Transmission Date: 20250115
  Serious: Yes (unspecified)
  Sender: Public
  Company Number: None

PATIENT
  Age: 76 Year
  Sex: Female
  Weight: 63.5 kg

DRUGS (16)
  1. PROLIA [Suspect]
     Active Substance: DENOSUMAB
     Indication: Osteoporosis
     Dates: start: 20240924
  2. ENBREL [Suspect]
     Active Substance: ETANERCEPT
  3. PREDNISONE [Suspect]
     Active Substance: PREDNISONE
  4. XELJANZ [Suspect]
     Active Substance: TOFACITINIB CITRATE
  5. TOLTERODINE [Concomitant]
  6. METHOTREXATE [Concomitant]
  7. FOLATE [Concomitant]
  8. ADVIL [Concomitant]
     Active Substance: IBUPROFEN
  9. CALCIUM [Concomitant]
     Active Substance: CALCIUM
  10. VITAMIN D NOS [Concomitant]
     Active Substance: CHOLECALCIFEROL\ERGOCALCIFEROL
  11. VITAMINS [Concomitant]
     Active Substance: VITAMINS
  12. ESSBNTIL FATTY ACIDS [Concomitant]
  13. VITAMIN C [Concomitant]
     Active Substance: ASCORBIC ACID
  14. VITAMIN B12 [Concomitant]
     Active Substance: CYANOCOBALAMIN
  15. IRON [Concomitant]
     Active Substance: IRON
  16. VITAMIN K [Concomitant]
     Active Substance: PHYTONADIONE

REACTIONS (7)
  - COVID-19 [None]
  - Rheumatoid arthritis [None]
  - Symptom recurrence [None]
  - Breakthrough COVID-19 [None]
  - Therapy interrupted [None]
  - Drug interaction [None]
  - Therapeutic product effect decreased [None]

NARRATIVE: CASE EVENT DATE: 20240924
